FAERS Safety Report 23918289 (Version 2)
Quarter: 2024Q3

REPORT INFORMATION
  Report Type: Spontaneous
  Country: US (occurrence: US)
  Receive Date: 20240530
  Receipt Date: 20240723
  Transmission Date: 20241016
  Serious: No
  Sender: Haleon PLC
  Company Number: US-HALEON-2178711

PATIENT

DRUGS (1)
  1. ABREVA [Suspect]
     Active Substance: DOCOSANOL
     Dosage: EXPDATE:202601EXPDATE:202601
     Route: 065

REACTIONS (3)
  - Oral herpes [Recovering/Resolving]
  - Condition aggravated [Recovering/Resolving]
  - Product complaint [Unknown]
